FAERS Safety Report 7419468-1 (Version None)
Quarter: 2011Q1

REPORT INFORMATION
  Report Type: 
  Country: None (occurrence: None)
  Receive Date: 20110317
  Receipt Date: 20110317
  Transmission Date: 20110831
  Serious: Yes (Other)
  Sender: FDA-Public Use
  Company Number: None

PATIENT
  Age: 44 Year
  Sex: Female
  Weight: 75 kg

DRUGS (2)
  1. ROCURONIUM BROMIDE [Suspect]
  2. FENTANYL [Suspect]

REACTIONS (8)
  - FIBRIN D DIMER INCREASED [None]
  - ABDOMINAL PAIN [None]
  - CHEST DISCOMFORT [None]
  - INCISION SITE ERYTHEMA [None]
  - DYSPNOEA [None]
  - DRUG HYPERSENSITIVITY [None]
  - CHILLS [None]
  - HEPATITIS ACUTE [None]
